FAERS Safety Report 4404315-2 (Version None)
Quarter: 2004Q3

REPORT INFORMATION
  Report Type: 
  Country: None (occurrence: None)
  Receive Date: 20040721
  Receipt Date: 20040721
  Transmission Date: 20050211
  Serious: Yes (Hospitalization)
  Sender: FDA-Public Use
  Company Number: None

PATIENT
  Age: 58 Year
  Sex: Male

DRUGS (8)
  1. PIROXICAM [Suspect]
     Indication: ARTHRITIS
     Dosage: 20 MG QD
  2. LISINOPRIL [Concomitant]
  3. INSULIN [Concomitant]
  4. HYDROCHLOROTHIAZIDE [Concomitant]
  5. SIMVASTATIN [Concomitant]
  6. LASIX [Concomitant]
  7. SERTRALINE HCL [Concomitant]
  8. SILDENAFIL [Concomitant]

REACTIONS (1)
  - RENAL FAILURE ACUTE [None]
